FAERS Safety Report 4476004-X (Version None)
Quarter: 2004Q3

REPORT INFORMATION
  Report Type: 
  Country: None (occurrence: None)
  Receive Date: 20040923
  Receipt Date: 20040618
  Transmission Date: 20050211
  Serious: No
  Sender: FDA-Public Use
  Company Number: USA040670502

PATIENT
  Age: 83 Year
  Sex: Female
  Weight: 49 kg

DRUGS (4)
  1. FORTEO [Suspect]
     Indication: BONE DENSITY DECREASED
     Dosage: 20 UG/1 DAY
     Dates: start: 20040604
  2. LEVOXYL [Concomitant]
  3. CALCIUM WITH VITAMIN D [Concomitant]
  4. ALENDRONATE SODIUM [Concomitant]

REACTIONS (2)
  - HEADACHE [None]
  - MUSCLE CRAMP [None]
